FAERS Safety Report 7206870-6 (Version None)
Quarter: 2011Q1

REPORT INFORMATION
  Report Type: 
  Country: None (occurrence: None)
  Receive Date: 20110103
  Receipt Date: 20100914
  Transmission Date: 20110831
  Serious: No
  Sender: FDA-Public Use
  Company Number: US-ABBOTT-10P-163-0671648-00

PATIENT
  Sex: Female
  Weight: 59.02 kg

DRUGS (4)
  1. DEPACON [Suspect]
     Indication: CONVULSION
     Route: 042
     Dates: start: 20100901, end: 20100910
  2. TOPAMAX [Concomitant]
     Indication: CONVULSION
     Route: 048
  3. LAMICTAL [Concomitant]
     Indication: CONVULSION
     Route: 048
  4. DEPAKOTE ER [Suspect]
     Indication: CONVULSION
     Route: 048
     Dates: start: 20100912

REACTIONS (2)
  - DIZZINESS [None]
  - DIPLOPIA [None]
